FAERS Safety Report 23819037 (Version 1)
Quarter: 2024Q2

REPORT INFORMATION
  Report Type: Spontaneous
  Country: US (occurrence: US)
  Receive Date: 20240506
  Receipt Date: 20240506
  Transmission Date: 20240716
  Serious: No
  Sender: FDA-Public Use
  Company Number: US-BRISTOL-MYERS SQUIBB COMPANY-2024-068946

PATIENT
  Age: 83 Year
  Sex: Female
  Weight: 53.6 kg

DRUGS (2)
  1. REBLOZYL [Suspect]
     Active Substance: LUSPATERCEPT-AAMT
     Indication: Myelofibrosis
     Route: 042
     Dates: start: 20220830
  2. REBLOZYL [Suspect]
     Active Substance: LUSPATERCEPT-AAMT
     Route: 042
     Dates: start: 20220830

REACTIONS (1)
  - Malaise [Unknown]

NARRATIVE: CASE EVENT DATE: 20240430
